FAERS Safety Report 6146682-8 (Version None)
Quarter: 2009Q2

REPORT INFORMATION
  Report Type: 
  Country: None (occurrence: None)
  Receive Date: 20090407
  Receipt Date: 20090326
  Transmission Date: 20091009
  Serious: Yes (Other)
  Sender: FDA-Public Use
  Company Number: CN-PFIZER INC-2009191468

PATIENT

DRUGS (1)
  1. AZITHROMYCIN [Suspect]
     Indication: PHARYNGITIS
     Dosage: UNK
     Route: 048

REACTIONS (4)
  - DRUG INEFFECTIVE [None]
  - ECCHYMOSIS [None]
  - PETECHIAE [None]
  - PLATELET COUNT DECREASED [None]
